FAERS Safety Report 5762692-4 (Version None)
Quarter: 2008Q2

REPORT INFORMATION
  Report Type: 
  Country: None (occurrence: None)
  Receive Date: 20080527
  Receipt Date: 20070925
  Transmission Date: 20081010
  Serious: Yes (Other)
  Sender: FDA-Public Use
  Company Number: 248500

PATIENT
  Age: 59 Year
  Sex: Female

DRUGS (2)
  1. HERCEPTIN [Suspect]
     Indication: BREAST CANCER
  2. ARIMIDEX [Concomitant]

REACTIONS (2)
  - EJECTION FRACTION DECREASED [None]
  - OEDEMA PERIPHERAL [None]
